FAERS Safety Report 7302171-6 (Version None)
Quarter: 2011Q1

REPORT INFORMATION
  Report Type: 
  Country: None (occurrence: None)
  Receive Date: 20110218
  Receipt Date: 20110207
  Transmission Date: 20110831
  Serious: Yes (Hospitalization, Other)
  Sender: FDA-Public Use
  Company Number: GXKR2011DK00852

PATIENT
  Sex: Male

DRUGS (6)
  1. AZATHIOPRINE [Concomitant]
  2. PREDNISOLONE [Concomitant]
     Indication: SARCOIDOSIS
     Dosage: UNK
     Dates: start: 20051027, end: 20060223
  3. METHOTREXATE [Suspect]
     Indication: SARCOIDOSIS
     Dosage: 20MG
     Dates: start: 20051027
  4. PREDNISOLONE [Concomitant]
     Dosage: UNK
     Dates: start: 20060601, end: 20080101
  5. PREDNISOLONE [Concomitant]
     Dosage: 7.5MG
  6. METHOTREXATE [Suspect]
     Dosage: UNK
     Dates: start: 20080118

REACTIONS (11)
  - PROGRESSIVE MULTIFOCAL LEUKOENCEPHALOPATHY [None]
  - ASTHENIA [None]
  - COGNITIVE DISORDER [None]
  - WALKING DISABILITY [None]
  - NERVOUS SYSTEM DISORDER [None]
  - GENERAL PHYSICAL HEALTH DETERIORATION [None]
  - COORDINATION ABNORMAL [None]
  - JC VIRUS INFECTION [None]
  - HEAD TITUBATION [None]
  - CONVULSION [None]
  - TREMOR [None]
